FAERS Safety Report 21019914 (Version 3)
Quarter: 2022Q3

REPORT INFORMATION
  Report Type: Spontaneous
  Country: US (occurrence: US)
  Receive Date: 20220628
  Receipt Date: 20220714
  Transmission Date: 20221027
  Serious: Yes (Death, Hospitalization)
  Sender: FDA-Public Use
  Company Number: US-Vifor (International) Inc.-VIT-2022-03966

PATIENT
  Age: 89 Year
  Sex: Female

DRUGS (2)
  1. VELTASSA [Suspect]
     Active Substance: PATIROMER
     Indication: Hyperkalaemia
     Route: 048
     Dates: start: 20220117
  2. VELTASSA [Suspect]
     Active Substance: PATIROMER
     Route: 048

REACTIONS (7)
  - Death [Fatal]
  - Renal disorder [Unknown]
  - Heart rate increased [Unknown]
  - Hypertension [Unknown]
  - Blood glucose increased [Unknown]
  - Product dose omission issue [Unknown]
  - Off label use [Unknown]

NARRATIVE: CASE EVENT DATE: 20220531
